FAERS Safety Report 8525739-8 (Version None)
Quarter: 2012Q3

REPORT INFORMATION
  Report Type: 
  Country: None (occurrence: None)
  Receive Date: 20120720
  Receipt Date: 20120703
  Transmission Date: 20120928
  Serious: Yes (Hospitalization)
  Sender: FDA-Public Use
  Company Number: FR-009507513-1206FRA00133

PATIENT

DRUGS (6)
  1. SITAGLIPTIN PHOSPHATE [Suspect]
     Dosage: 100 MG, QD
     Route: 048
     Dates: start: 20111001, end: 20120416
  2. NEXIUM [Concomitant]
  3. METFORMIN HCL [Concomitant]
     Dosage: 500 MG, TID
     Route: 048
  4. VENTOLIN [Concomitant]
  5. GAVISCON (ALGINIC ACID (+) ALUMINUM HYDROXIDE (+) MAGNESIUM TRISILICAT [Concomitant]
  6. OLMESARTAN MEDOXOMIL AND HYDROCHLOROTHIZIDE [Concomitant]

REACTIONS (3)
  - PEMPHIGOID [None]
  - EOSINOPHILIA [None]
  - PRURITUS [None]
